FAERS Safety Report 9243326 (Version 1)
Quarter: 2013Q2

REPORT INFORMATION
  Report Type: Spontaneous
  Country: CH (occurrence: CH)
  Receive Date: 20130419
  Receipt Date: 20130419
  Transmission Date: 20140414
  Serious: Yes (Other)
  Sender: FDA-Public Use
  Company Number: CH-ASTRAZENECA-2013SE24369

PATIENT
  Age: 70 Year
  Sex: Male

DRUGS (10)
  1. NEXIUM [Suspect]
     Indication: PROPHYLAXIS
     Route: 048
     Dates: start: 201302, end: 20130302
  2. CRESTOR [Suspect]
     Indication: HYPERCHOLESTEROLAEMIA
     Route: 048
     Dates: end: 20130302
  3. VANCOMYCIN [Suspect]
     Route: 042
     Dates: start: 20130209, end: 20130225
  4. IBUPROFEN [Suspect]
     Route: 048
     Dates: start: 20130212, end: 20130225
  5. TAZOBAC [Concomitant]
     Indication: BRONCHOPNEUMONIA
     Route: 042
     Dates: start: 20130130, end: 20130225
  6. ASPIRIN CARDIO [Concomitant]
     Route: 048
  7. BELOC ZOC COMP [Concomitant]
     Route: 048
     Dates: start: 20130202
  8. TORASEMIDE [Concomitant]
     Route: 048
     Dates: start: 201301
  9. PARACETAMOL [Concomitant]
  10. ZOLPIDEM [Concomitant]

REACTIONS (6)
  - Renal failure acute [Recovered/Resolved]
  - Pyrexia [Recovered/Resolved]
  - Hypotension [Recovered/Resolved]
  - Inflammation [Recovered/Resolved]
  - Rash maculo-papular [Recovered/Resolved]
  - Eosinophilia [Recovered/Resolved]
